FAERS Safety Report 6491590-6 (Version None)
Quarter: 2009Q4

REPORT INFORMATION
  Report Type: 
  Country: None (occurrence: None)
  Receive Date: 20091211
  Receipt Date: 20091201
  Transmission Date: 20100525
  Serious: Yes (Death, Other)
  Sender: FDA-Public Use
  Company Number: DE-GENENTECH-295464

PATIENT
  Age: 79 Year
  Sex: Male

DRUGS (2)
  1. MABTHERA [Suspect]
     Indication: CHRONIC LYMPHOCYTIC LEUKAEMIA
     Dosage: 3 CYCLES IN COMBINATION WITH BENDAMUSTINE
     Route: 065
  2. BENDAMUSTINE [Concomitant]
     Dosage: 3 CYCLES IN COMBINATION WITH RITUXIMAB

REACTIONS (2)
  - LUNG INFILTRATION [None]
  - VASCULAR OCCLUSION [None]
